FAERS Safety Report 7110925-4 (Version None)
Quarter: 2010Q4

REPORT INFORMATION
  Report Type: 
  Country: None (occurrence: None)
  Receive Date: 20101118
  Receipt Date: 20101015
  Transmission Date: 20110411
  Serious: Yes (Death, Hospitalization)
  Sender: FDA-Public Use
  Company Number: DE-AMGEN-QUU423170

PATIENT

DRUGS (11)
  1. ETANERCEPT [Suspect]
     Indication: RHEUMATOID ARTHRITIS
     Dosage: 25 MG, 2 TIMES/WK
     Route: 058
     Dates: start: 20090901, end: 20100101
  2. TOREM [Concomitant]
     Indication: CARDIAC FAILURE
     Route: 048
  3. XIPAMIDE [Concomitant]
     Indication: CARDIAC FAILURE
     Route: 048
  4. LEVOTHYROXINE SODIUM [Concomitant]
     Indication: THYROIDECTOMY
     Route: 048
  5. PREDNISOLONE [Concomitant]
     Indication: RHEUMATOID ARTHRITIS
     Dosage: VARYING DOSES, IN JUN-2009 5 MG PER DAY
     Route: 048
     Dates: start: 20020101
  6. BISOPROLOL FUMARATE [Concomitant]
     Indication: HYPERTENSION
     Route: 048
  7. CALCIUM CARBONATE/COLECALCIFEROL [Concomitant]
     Indication: OSTEOPOROSIS
  8. VIANI [Concomitant]
     Indication: CHRONIC OBSTRUCTIVE PULMONARY DISEASE
  9. SALBUTAMOL [Concomitant]
     Indication: CHRONIC OBSTRUCTIVE PULMONARY DISEASE
  10. FALITHROM [Concomitant]
     Indication: ATRIAL FIBRILLATION
     Dosage: ^ACCORDING TO DOSE PLAN^
  11. BLOPRESS [Concomitant]
     Indication: HYPERTENSION
     Route: 048

REACTIONS (2)
  - METASTASES TO PLEURA [None]
  - METASTATIC BRONCHIAL CARCINOMA [None]
